FAERS Safety Report 9603761 (Version 3)
Quarter: 2013Q4

REPORT INFORMATION
  Report Type: Report from Study
  Country: GB (occurrence: GB)
  Receive Date: 20131007
  Receipt Date: 20131010
  Transmission Date: 20140711
  Serious: Yes (Hospitalization, Disabling, Other)
  Sender: FDA-Public Use
  Company Number: GB-MERCK-1302GBR003682

PATIENT
  Age: 48 Year
  Sex: Male

DRUGS (3)
  1. VORINOSTAT [Suspect]
     Indication: PLASMA CELL MYELOMA
     Dosage: 300 MG, DAYS 1-7 AND 15-21
     Route: 048
     Dates: start: 20130110, end: 20130306
  2. LENALIDOMIDE [Suspect]
     Indication: PLASMA CELL MYELOMA
     Dosage: 10 MG, DAYS 1-21
     Route: 048
     Dates: start: 20130110, end: 20130306
  3. DOXYCYCLINE [Suspect]

REACTIONS (3)
  - Pulmonary mass [Recovering/Resolving]
  - Neutropenia [Recovered/Resolved]
  - Varicella [Recovered/Resolved]
